FAERS Safety Report 16282024 (Version 2)
Quarter: 2019Q3

REPORT INFORMATION
  Report Type: Spontaneous
  Country: JP (occurrence: JP)
  Receive Date: 20190507
  Receipt Date: 20190701
  Transmission Date: 20191004
  Serious: Yes (Other)
  Sender: FDA-Public Use
  Company Number: JP-BRISTOL-MYERS SQUIBB COMPANY-BMS-2019-044668

PATIENT
  Age: 83 Year
  Sex: Male
  Weight: 55 kg

DRUGS (9)
  1. BERAPROST NA [Concomitant]
     Active Substance: BERAPROST SODIUM
     Indication: ULCER
     Dosage: 20 MILLIGRAM, TID
     Route: 048
  2. BERAPROST NA [Concomitant]
     Active Substance: BERAPROST SODIUM
     Indication: ARTERIAL OCCLUSIVE DISEASE
     Route: 065
  3. PRASUGREL HCL [Concomitant]
     Indication: ACUTE CORONARY SYNDROME
     Route: 065
  4. BERAPROST NA [Concomitant]
     Active Substance: BERAPROST SODIUM
     Indication: PAIN
     Route: 065
  5. BERAPROST NA [Concomitant]
     Active Substance: BERAPROST SODIUM
     Indication: FEELING COLD
     Route: 065
  6. ELIQUIS [Suspect]
     Active Substance: APIXABAN
     Indication: PRODUCT USED FOR UNKNOWN INDICATION
     Dosage: 2.5 MILLIGRAM, ONCE DAILY
     Route: 048
     Dates: start: 20180428
  7. PRASUGREL HCL [Concomitant]
     Indication: MYOCARDIAL ISCHAEMIA
     Dosage: 3.75 MILLIGRAM, ONCE DAILY
     Route: 048
     Dates: start: 20171128
  8. ELIQUIS [Suspect]
     Active Substance: APIXABAN
     Indication: CEREBROVASCULAR ACCIDENT PROPHYLAXIS
     Dosage: 5 MILLIGRAM, BID
     Route: 048
     Dates: start: 20180414, end: 20180420
  9. ELIQUIS [Suspect]
     Active Substance: APIXABAN
     Indication: PRODUCT USED FOR UNKNOWN INDICATION
     Dosage: 2.5 MILLIGRAM, BID
     Route: 048
     Dates: start: 20180421, end: 20180427

REACTIONS (2)
  - Renal impairment [Unknown]
  - Off label use [Unknown]

NARRATIVE: CASE EVENT DATE: 20180427
